FAERS Safety Report 19609381 (Version 3)
Quarter: 2022Q3

REPORT INFORMATION
  Report Type: Spontaneous
  Country: JP (occurrence: JP)
  Receive Date: 20210726
  Receipt Date: 20220805
  Transmission Date: 20221027
  Serious: Yes (Disabling, Other)
  Sender: FDA-Public Use
  Company Number: JP-NOVARTISPH-NVSJ2021JP003665

PATIENT
  Age: 76 Year
  Sex: Male
  Weight: 65 kg

DRUGS (3)
  1. BEOVU [Suspect]
     Active Substance: BROLUCIZUMAB-DBLL
     Indication: Neovascular age-related macular degeneration
     Dosage: 6 MG
     Route: 031
     Dates: start: 20201006, end: 20201006
  2. BEOVU [Suspect]
     Active Substance: BROLUCIZUMAB-DBLL
     Indication: Polypoidal choroidal vasculopathy
     Dosage: 6 MG
     Route: 031
     Dates: start: 20210119, end: 20210119
  3. LEVOFLOXACIN [Concomitant]
     Active Substance: LEVOFLOXACIN
     Indication: Product used for unknown indication
     Dosage: UNK
     Route: 047

REACTIONS (12)
  - Retinal vasculitis [Not Recovered/Not Resolved]
  - Retinal vascular occlusion [Recovering/Resolving]
  - Eye pain [Unknown]
  - Blindness [Not Recovered/Not Resolved]
  - Retinal infiltrates [Unknown]
  - Polypoidal choroidal vasculopathy [Unknown]
  - Choroidal neovascularisation [Not Recovered/Not Resolved]
  - Disease progression [Unknown]
  - Uveitis [Unknown]
  - Optic atrophy [Unknown]
  - Vision blurred [Unknown]
  - Intraocular pressure increased [Unknown]

NARRATIVE: CASE EVENT DATE: 20210119
